FAERS Safety Report 7875846-8 (Version None)
Quarter: 2011Q4

REPORT INFORMATION
  Report Type: 
  Country: None (occurrence: None)
  Receive Date: 20111031
  Receipt Date: 20111019
  Transmission Date: 20120403
  Serious: Yes (Other)
  Sender: FDA-Public Use
  Company Number: PHFR2011GB04658

PATIENT
  Sex: Male

DRUGS (2)
  1. CLOZARIL [Suspect]
     Indication: SCHIZOAFFECTIVE DISORDER
     Dosage: 350 MG/DAY
     Route: 048
     Dates: start: 20110720
  2. VALPROATE SODIUM [Concomitant]
     Indication: SCHIZOAFFECTIVE DISORDER
     Dosage: 2000 MG/DAY
     Route: 048

REACTIONS (7)
  - HYPERPYREXIA [None]
  - FOOD POISONING [None]
  - HEADACHE [None]
  - VOMITING [None]
  - EOSINOPHIL COUNT INCREASED [None]
  - HEART RATE INCREASED [None]
  - DIARRHOEA [None]
